FAERS Safety Report 16633545 (Version 1)
Quarter: 2019Q3

REPORT INFORMATION
  Report Type: Spontaneous
  Country: US (occurrence: US)
  Receive Date: 20190725
  Receipt Date: 20190725
  Transmission Date: 20191004
  Serious: Yes (Hospitalization)
  Sender: FDA-Public Use
  Company Number: None

PATIENT
  Sex: Female

DRUGS (4)
  1. VERAPAMIL, PREDNISONE, IPRATROPIUM/ALBUTEROL [Concomitant]
  2. XELJANZ [Suspect]
     Active Substance: TOFACITINIB CITRATE
     Indication: RHEUMATOID ARTHRITIS
     Route: 048
     Dates: start: 20180615
  3. VENLAFAXINE, ROSUVASTATIN, ESTRADIOL [Concomitant]
  4. METHOTREXATE, FOLIC ACID, LORAZEPAM, BUDESONIDE [Concomitant]

REACTIONS (2)
  - Therapy cessation [None]
  - Hospitalisation [None]
